FAERS Safety Report 23938928 (Version 1)
Quarter: 2024Q2

REPORT INFORMATION
  Report Type: Spontaneous
  Country: HU (occurrence: HU)
  Receive Date: 20240604
  Receipt Date: 20240604
  Transmission Date: 20240716
  Serious: Yes (Other)
  Sender: FDA-Public Use
  Company Number: HU-002147023-NVSC2024HU112302

PATIENT

DRUGS (3)
  1. RUXOLITINIB [Suspect]
     Active Substance: RUXOLITINIB
     Indication: Polycythaemia vera
     Dosage: 20 MG, BID
     Route: 065
     Dates: start: 201707, end: 201909
  2. RUXOLITINIB [Suspect]
     Active Substance: RUXOLITINIB
     Dosage: UNK
     Route: 065
     Dates: start: 202311
  3. RUXOLITINIB [Suspect]
     Active Substance: RUXOLITINIB
     Dosage: 20 MG, BID
     Route: 065
     Dates: start: 202401

REACTIONS (7)
  - Product use issue [Unknown]
  - Haemoglobin increased [Recovering/Resolving]
  - Blood lactate dehydrogenase increased [Unknown]
  - Polycythaemia vera [Unknown]
  - Splenomegaly [Not Recovered/Not Resolved]
  - Platelet count increased [Not Recovered/Not Resolved]
  - White blood cell count increased [Recovering/Resolving]

NARRATIVE: CASE EVENT DATE: 20170801
